FAERS Safety Report 16883525 (Version 1)
Quarter: 2019Q4

REPORT INFORMATION
  Report Type: Spontaneous
  Country: ES (occurrence: ES)
  Receive Date: 20191004
  Receipt Date: 20191004
  Transmission Date: 20200122
  Serious: Yes (Other)
  Sender: FDA-Public Use
  Company Number: ES-ROCHE-2424842

PATIENT
  Age: 79 Year
  Sex: Female

DRUGS (1)
  1. RITUXIMAB. [Suspect]
     Active Substance: RITUXIMAB
     Indication: NON-HODGKIN^S LYMPHOMA
     Dosage: 1400 MG CADA 2 MESES
     Route: 058
     Dates: start: 20171227, end: 20190913

REACTIONS (1)
  - Immunodeficiency [Recovering/Resolving]

NARRATIVE: CASE EVENT DATE: 20190506
